FAERS Safety Report 6262877-7 (Version None)
Quarter: 2009Q3

REPORT INFORMATION
  Report Type: 
  Country: None (occurrence: None)
  Receive Date: 20090709
  Receipt Date: 20090630
  Transmission Date: 20100115
  Serious: Yes (Other)
  Sender: FDA-Public Use
  Company Number: BE-ABBOTT-09P-013-0582905-00

PATIENT
  Sex: Male

DRUGS (10)
  1. HUMIRA [Suspect]
     Indication: RHEUMATOID ARTHRITIS
     Route: 058
     Dates: start: 20040101
  2. LEDERTREXATE [Concomitant]
     Indication: RHEUMATOID ARTHRITIS
     Route: 030
  3. FOLIC ACID [Concomitant]
     Indication: RHEUMATOID ARTHRITIS
     Dosage: 1MG DAILY
  4. ARAVA [Concomitant]
     Indication: RHEUMATOID ARTHRITIS
     Dosage: 20MG DAILY
  5. MEDROL [Concomitant]
     Indication: RHEUMATOID ARTHRITIS
     Dosage: 2MG DAILY
  6. VOLTAREN [Concomitant]
     Indication: RHEUMATOID ARTHRITIS
     Dosage: 75 MG 2X/DAY AS NEEDED
  7. FOSAVANCE [Concomitant]
     Indication: DRUG USE FOR UNKNOWN INDICATION
  8. STEAVIT D3 [Concomitant]
     Indication: DRUG USE FOR UNKNOWN INDICATION
  9. XANAX [Concomitant]
     Indication: DRUG USE FOR UNKNOWN INDICATION
     Dosage: 0.5 MG AS NEEDED
  10. LEVITRA [Concomitant]
     Indication: DRUG USE FOR UNKNOWN INDICATION
     Dosage: AS NEEDED

REACTIONS (1)
  - CERVICAL ROOT PAIN [None]
